FAERS Safety Report 23378486 (Version 4)
Quarter: 2024Q2

REPORT INFORMATION
  Report Type: Report from Study
  Country: IN (occurrence: IN)
  Receive Date: 20240108
  Receipt Date: 20240412
  Transmission Date: 20240716
  Serious: Yes (Death, Other)
  Sender: FDA-Public Use
  Company Number: IN-002147023-NVSC2023IN265434

PATIENT

DRUGS (3)
  1. RUXOLITINIB [Suspect]
     Active Substance: RUXOLITINIB
     Indication: Myeloproliferative neoplasm
     Dosage: 20 MG, BID
     Route: 048
     Dates: end: 20240305
  2. RUXOLITINIB [Suspect]
     Active Substance: RUXOLITINIB
     Dosage: 5 MG, BID
     Route: 048
  3. RUXOLITINIB [Suspect]
     Active Substance: RUXOLITINIB
     Dosage: 10 MG, BID
     Route: 048

REACTIONS (9)
  - Portal vein dilatation [Fatal]
  - Myelofibrosis [Fatal]
  - Disease progression [Fatal]
  - Haemoglobin decreased [Fatal]
  - Asthenia [Fatal]
  - Anaemia [Fatal]
  - Platelet count abnormal [Fatal]
  - Myeloblast count increased [Fatal]
  - Splenomegaly [Fatal]
